FAERS Safety Report 14797902 (Version 1)
Quarter: 2018Q2

REPORT INFORMATION
  Report Type: Spontaneous
  Country: FR (occurrence: FR)
  Receive Date: 20180424
  Receipt Date: 20180424
  Transmission Date: 20180711
  Serious: Yes (Other)
  Sender: FDA-Public Use
  Company Number: FR-MERCK KGAA-2046347

PATIENT
  Age: 41 Year
  Sex: Female

DRUGS (1)
  1. NOVOTHYROX [Suspect]
     Active Substance: LEVOTHYROXINE SODIUM
     Indication: PRODUCT USED FOR UNKNOWN INDICATION
     Dates: start: 201707, end: 201710

REACTIONS (9)
  - Anxiety [None]
  - Anger [None]
  - Alopecia [None]
  - Diplegia [None]
  - Myalgia [None]
  - Dysphagia [Not Recovered/Not Resolved]
  - Insomnia [None]
  - Irritability [None]
  - Impatience [None]

NARRATIVE: CASE EVENT DATE: 2017
